FAERS Safety Report 18817139 (Version 3)
Quarter: 2021Q1

REPORT INFORMATION
  Report Type: Spontaneous
  Country: US (occurrence: US)
  Receive Date: 20210201
  Receipt Date: 20210216
  Transmission Date: 20210419
  Serious: No
  Sender: FDA-Public Use
  Company Number: US-PFIZER INC-2021076904

PATIENT
  Sex: Female

DRUGS (1)
  1. KLOR?CON [Suspect]
     Active Substance: POTASSIUM CHLORIDE
     Dosage: UNK

REACTIONS (3)
  - Pharyngeal swelling [Unknown]
  - Drug hypersensitivity [Unknown]
  - Dysphagia [Unknown]
